FAERS Safety Report 5682259-6 (Version None)
Quarter: 2008Q1

REPORT INFORMATION
  Report Type: 
  Country: None (occurrence: None)
  Receive Date: 20080326
  Receipt Date: 20080326
  Transmission Date: 20080703
  Serious: Yes (Disabling, Other)
  Sender: FDA-Public Use
  Company Number: None

PATIENT
  Sex: Female
  Weight: 58.0604 kg

DRUGS (1)
  1. DEPO-PROVERA [Suspect]
     Indication: CONTRACEPTION
     Dosage: 150 MG 3 MONTHS IM
     Route: 030
     Dates: start: 19960101, end: 20080301

REACTIONS (10)
  - ACNE [None]
  - ALOPECIA [None]
  - AMENORRHOEA [None]
  - CONVULSION [None]
  - FLUID RETENTION [None]
  - LOSS OF LIBIDO [None]
  - MIGRAINE [None]
  - MOOD ALTERED [None]
  - OSTEOPOROSIS [None]
  - WEIGHT INCREASED [None]
